FAERS Safety Report 18558921 (Version 1)
Quarter: 2020Q4

REPORT INFORMATION
  Report Type: Spontaneous
  Country: CA (occurrence: CA)
  Receive Date: 20201130
  Receipt Date: 20201130
  Transmission Date: 20210114
  Serious: Yes (Death, Life-Threatening, Hospitalization, Other)
  Sender: FDA-Public Use
  Company Number: CA-EMCURE PHARMACEUTICALS LTD-2017-EPL-000985

PATIENT
  Age: 71 Year
  Sex: Female

DRUGS (10)
  1. FESOTERODINE [Suspect]
     Active Substance: FESOTERODINE
     Dosage: UNKNOWN QUANTITY
     Route: 048
  2. AMITRIPTYLINE [Suspect]
     Active Substance: AMITRIPTYLINE
     Dosage: UNKNOWN QUANTITY
     Route: 048
  3. PROPRANOLOL [Suspect]
     Active Substance: PROPRANOLOL HYDROCHLORIDE
     Dosage: UNKNOWN QUANTITY,MODIFIED RELEASE
     Route: 048
  4. BUPROPION. [Suspect]
     Active Substance: BUPROPION
     Dosage: UNKNOWN QUANTITY
     Route: 048
  5. CITALOPRAM [Suspect]
     Active Substance: CITALOPRAM HYDROBROMIDE
     Dosage: UNKNOWN QUANTITY,MODIFIED RELEASE
     Route: 048
  6. PANTOPRAZOLE [Suspect]
     Active Substance: PANTOPRAZOLE
     Dosage: UNKNOWN QUANTITY,MODIFIED RELEASE
     Route: 048
  7. OXYCODONE [Suspect]
     Active Substance: OXYCODONE
     Dosage: UNKNOWN QUANTITY,MODIFIED RELEASE
     Route: 048
  8. LORAZEPAM. [Suspect]
     Active Substance: LORAZEPAM
     Dosage: UNKNOWN QUANTITY,MODIFIED RELEASE
     Route: 048
  9. LEVOTHYROXINE SODIUM. [Suspect]
     Active Substance: LEVOTHYROXINE SODIUM
     Dosage: UNKNOWN QUANTITY,MODIFIED RELEASE
     Route: 048
  10. ROSUVASTATIN. [Suspect]
     Active Substance: ROSUVASTATIN
     Dosage: UNKNOWN QUANTITY
     Route: 048

REACTIONS (7)
  - Cardiac arrest [Unknown]
  - Bradycardia [Unknown]
  - Overdose [Unknown]
  - Hypotension [Unknown]
  - Brain injury [Fatal]
  - Loss of consciousness [Unknown]
  - Pulseless electrical activity [Unknown]
